FAERS Safety Report 5655968-2 (Version None)
Quarter: 2008Q1

REPORT INFORMATION
  Report Type: 
  Country: None (occurrence: None)
  Receive Date: 20080307
  Receipt Date: 20080228
  Transmission Date: 20080703
  Serious: Yes (Hospitalization)
  Sender: FDA-Public Use
  Company Number: AU-PFIZER INC-2008018179

PATIENT
  Sex: Male

DRUGS (15)
  1. ATORVASTATIN CALCIUM [Suspect]
  2. CINACALCET HYDROCHLORIDE [Suspect]
     Indication: HYPERPARATHYROIDISM SECONDARY
     Dosage: TEXT:1 IN 1 DAYS
     Route: 048
     Dates: start: 20051209, end: 20060609
  3. ALLOPURINOL [Suspect]
  4. VALPROATE SODIUM [Suspect]
  5. GEMFIBROZIL [Concomitant]
  6. ARANESP [Concomitant]
     Indication: RENAL FAILURE CHRONIC
     Dates: start: 20060312
  7. ASPIRIN [Concomitant]
     Dates: start: 19910101
  8. IRBESARTAN [Concomitant]
     Dates: start: 20040604
  9. FORMOTEROL [Concomitant]
     Dates: start: 20051010, end: 20060518
  10. WARFARIN SODIUM [Concomitant]
     Dates: start: 20060131, end: 20060426
  11. FOSINOPRIL SODIUM [Concomitant]
     Dates: start: 20020101
  12. PIOGLITAZONE HCL [Concomitant]
  13. LERCANIDIPINE HYDROCHLORIDE [Concomitant]
  14. FUROSEMIDE [Concomitant]
  15. ISOSORBIDE DINITRATE [Concomitant]

REACTIONS (3)
  - CHOLESTASIS [None]
  - GASTROENTERITIS [None]
  - RENAL FAILURE ACUTE [None]
